FAERS Safety Report 12789546 (Version 3)
Quarter: 2016Q4

REPORT INFORMATION
  Report Type: Spontaneous
  Country: JP (occurrence: JP)
  Receive Date: 20160928
  Receipt Date: 20161020
  Transmission Date: 20170207
  Serious: Yes (Hospitalization)
  Sender: FDA-Public Use
  Company Number: JP-PFIZER INC-2016387599

PATIENT
  Age: 60 Year
  Sex: Male

DRUGS (4)
  1. HEPARIN [Suspect]
     Active Substance: HEPARIN SODIUM
     Dosage: 8000 TO 15000 UNIT, DAILY
     Route: 041
     Dates: start: 20160808, end: 20160814
  2. WARFARIN [Concomitant]
     Active Substance: WARFARIN
     Indication: CARDIAC VALVE DISEASE
     Dosage: UNK
     Route: 048
     Dates: end: 20160808
  3. LYRICA [Suspect]
     Active Substance: PREGABALIN
     Indication: NEURALGIA
     Dosage: 75 MG, 1X/DAY (IN THE EVENING)
     Route: 048
     Dates: start: 20160707, end: 20160808
  4. LYRICA [Suspect]
     Active Substance: PREGABALIN
     Dosage: 100 MG (25 MG AFTER BREAKFAST AND 75 MG IN THE EVENING), DAILY
     Route: 048
     Dates: start: 20160809, end: 20160814

REACTIONS (2)
  - Drug-induced liver injury [Recovered/Resolved]
  - Drug ineffective [Unknown]

NARRATIVE: CASE EVENT DATE: 20160809
